FAERS Safety Report 13400494 (Version 2)
Quarter: 2019Q1

REPORT INFORMATION
  Report Type: Spontaneous
  Country: GB (occurrence: GB)
  Receive Date: 20170404
  Receipt Date: 20190118
  Transmission Date: 20190417
  Serious: Yes (Death, Hospitalization, Other)
  Sender: FDA-Public Use
  Company Number: GB-DRREDDYS-GER/UKI/17/0088320

PATIENT
  Age: 35 Year
  Sex: Female
  Weight: 141 kg

DRUGS (37)
  1. CLOZAPINE. [Suspect]
     Active Substance: CLOZAPINE
     Indication: PSYCHOTIC DISORDER
     Route: 065
     Dates: start: 20140911
  2. CLOZAPINE. [Suspect]
     Active Substance: CLOZAPINE
     Dates: start: 20140922, end: 20140928
  3. CLOZAPINE. [Suspect]
     Active Substance: CLOZAPINE
     Dates: start: 20140915
  4. CLOZAPINE. [Suspect]
     Active Substance: CLOZAPINE
     Dates: start: 20140917
  5. CLOZAPINE. [Suspect]
     Active Substance: CLOZAPINE
     Dates: start: 20140929
  6. FENTANYL. [Suspect]
     Active Substance: FENTANYL
     Indication: PRODUCT USED FOR UNKNOWN INDICATION
     Dosage: UNK
     Route: 065
     Dates: start: 201409
  7. CLOZAPINE. [Suspect]
     Active Substance: CLOZAPINE
     Indication: BORDERLINE PERSONALITY DISORDER
     Dates: start: 20140908
  8. CLOZAPINE. [Suspect]
     Active Substance: CLOZAPINE
     Dates: start: 20140915
  9. CLOZAPINE. [Suspect]
     Active Substance: CLOZAPINE
     Dates: start: 20140912
  10. CLOZAPINE. [Suspect]
     Active Substance: CLOZAPINE
     Route: 065
     Dates: start: 20140910
  11. CLOZAPINE. [Suspect]
     Active Substance: CLOZAPINE
     Dates: start: 20140920
  12. CHLORPHENAMINE [Suspect]
     Active Substance: CHLORPHENIRAMINE MALEATE
     Indication: PRODUCT USED FOR UNKNOWN INDICATION
     Route: 065
  13. CLOZAPINE. [Suspect]
     Active Substance: CLOZAPINE
     Indication: POST-TRAUMATIC STRESS DISORDER
     Dates: start: 20140912
  14. CLOZAPINE. [Suspect]
     Active Substance: CLOZAPINE
     Dates: start: 20140919
  15. CETIRIZINE [Suspect]
     Active Substance: CETIRIZINE HYDROCHLORIDE
     Indication: PRODUCT USED FOR UNKNOWN INDICATION
     Route: 065
  16. ATRACURIUM [Suspect]
     Active Substance: ATRACURIUM
     Indication: PRODUCT USED FOR UNKNOWN INDICATION
     Route: 065
  17. CLOZAPINE. [Suspect]
     Active Substance: CLOZAPINE
     Dates: start: 20140921
  18. CLOZAPINE. [Suspect]
     Active Substance: CLOZAPINE
     Dates: start: 20140917
  19. CLOZAPINE. [Suspect]
     Active Substance: CLOZAPINE
     Route: 065
     Dates: start: 20140916
  20. CLOZAPINE. [Suspect]
     Active Substance: CLOZAPINE
     Dates: start: 20140913
  21. CLOZAPINE. [Suspect]
     Active Substance: CLOZAPINE
     Dates: start: 20140918
  22. CLOZAPINE. [Suspect]
     Active Substance: CLOZAPINE
     Dates: start: 20140921
  23. CLOZAPINE. [Suspect]
     Active Substance: CLOZAPINE
     Dates: start: 20140930, end: 20141002
  24. CLOZAPINE. [Suspect]
     Active Substance: CLOZAPINE
     Dates: start: 20140922, end: 20140928
  25. HYDROXYZINE [Suspect]
     Active Substance: HYDROXYZINE HYDROCHLORIDE
     Indication: PRODUCT USED FOR UNKNOWN INDICATION
     Route: 065
  26. LITHIUM CARBONATE. [Suspect]
     Active Substance: LITHIUM CARBONATE
     Indication: PRODUCT USED FOR UNKNOWN INDICATION
     Route: 065
     Dates: start: 20141002
  27. TRIMETHOPRIM. [Suspect]
     Active Substance: TRIMETHOPRIM
     Indication: PRODUCT USED FOR UNKNOWN INDICATION
     Route: 065
  28. CLOZAPINE. [Suspect]
     Active Substance: CLOZAPINE
     Indication: ANTISOCIAL PERSONALITY DISORDER
     Dates: start: 20140918
  29. CLOZAPINE. [Suspect]
     Active Substance: CLOZAPINE
     Dates: start: 20140913
  30. CLOZAPINE. [Suspect]
     Active Substance: CLOZAPINE
     Dates: start: 20140929, end: 20140930
  31. CLOZAPINE. [Suspect]
     Active Substance: CLOZAPINE
     Dates: start: 20140920
  32. CLOZAPINE. [Suspect]
     Active Substance: CLOZAPINE
     Route: 065
     Dates: start: 20140909
  33. CLOZAPINE. [Suspect]
     Active Substance: CLOZAPINE
     Dates: start: 20140919
  34. CLOZAPINE. [Suspect]
     Active Substance: CLOZAPINE
     Route: 065
     Dates: start: 20140914
  35. CLOZAPINE. [Suspect]
     Active Substance: CLOZAPINE
     Route: 065
     Dates: start: 20140930, end: 20141002
  36. MIDAZOLAM [Suspect]
     Active Substance: MIDAZOLAM HYDROCHLORIDE
     Indication: PRODUCT USED FOR UNKNOWN INDICATION
     Route: 065
  37. ZUCLOPENTHIXOL [Suspect]
     Active Substance: ZUCLOPENTHIXOL
     Indication: PRODUCT USED FOR UNKNOWN INDICATION
     Route: 065

REACTIONS (20)
  - Pneumocystis jirovecii pneumonia [Fatal]
  - Malaise [Fatal]
  - Inflammation [Unknown]
  - Dizziness [Unknown]
  - Neutropenic sepsis [Fatal]
  - Infection [Unknown]
  - Agitation [Unknown]
  - Cardiac arrest [Fatal]
  - Subarachnoid haemorrhage [Fatal]
  - Multiple organ dysfunction syndrome [Fatal]
  - Blood urea increased [Unknown]
  - Product use in unapproved indication [Unknown]
  - Constipation [Unknown]
  - Bone marrow failure [Fatal]
  - Subdural haemorrhage [Fatal]
  - Acute respiratory distress syndrome [Fatal]
  - Myelodysplastic syndrome [Fatal]
  - Oropharyngeal pain [Unknown]
  - Tonsillar hypertrophy [Unknown]
  - Refusal of treatment by patient [Unknown]

NARRATIVE: CASE EVENT DATE: 2014
